FAERS Safety Report 11393267 (Version 1)
Quarter: 2015Q3

REPORT INFORMATION
  Report Type: Spontaneous
  Country: US (occurrence: US)
  Receive Date: 20150818
  Receipt Date: 20150818
  Transmission Date: 20151125
  Serious: No
  Sender: FDA-Public Use
  Company Number: US-GLAXOSMITHKLINE-US2015GSK099498

PATIENT
  Sex: Female

DRUGS (14)
  1. VOTRIENT [Suspect]
     Active Substance: PAZOPANIB HYDROCHLORIDE
     Dosage: 800 MG, QD
     Route: 048
     Dates: start: 20150613
  2. ALPRAZOLAM. [Concomitant]
     Active Substance: ALPRAZOLAM
  3. ZYVOX [Concomitant]
     Active Substance: LINEZOLID
  4. ENOXAPARIN [Concomitant]
     Active Substance: ENOXAPARIN
  5. FLONASE [Concomitant]
     Active Substance: FLUTICASONE PROPIONATE
  6. AZELASTINE [Concomitant]
     Active Substance: AZELASTINE
  7. ADVAIR DISKUS [Concomitant]
     Active Substance: FLUTICASONE PROPIONATE\SALMETEROL XINAFOATE
  8. METOPROLOL [Concomitant]
     Active Substance: METOPROLOL
  9. PREDNISONE. [Concomitant]
     Active Substance: PREDNISONE
  10. NIFEDIPINE. [Concomitant]
     Active Substance: NIFEDIPINE
  11. VOTRIENT [Suspect]
     Active Substance: PAZOPANIB HYDROCHLORIDE
     Indication: RENAL CANCER
     Dosage: 400 MG, QD
     Route: 048
     Dates: start: 20150530
  12. TYLENOL [Concomitant]
     Active Substance: ACETAMINOPHEN
  13. TUDORZA PRESSAIR [Concomitant]
     Active Substance: ACLIDINIUM BROMIDE
  14. VALSARTAN. [Concomitant]
     Active Substance: VALSARTAN

REACTIONS (1)
  - Hospice care [Unknown]
